FAERS Safety Report 8442836-6 (Version None)
Quarter: 2012Q2

REPORT INFORMATION
  Report Type: 
  Country: None (occurrence: None)
  Receive Date: 20120615
  Receipt Date: 20120606
  Transmission Date: 20120825
  Serious: Yes (Other)
  Sender: FDA-Public Use
  Company Number: US-ASTRAZENECA-2012SE37891

PATIENT
  Sex: Female

DRUGS (1)
  1. SEROQUEL [Suspect]
     Dosage: 200MG IN THE MORNING, 200MG AT LUNCH, 200MG AT 3PM AND 200MG IN THE EVENING TO GET 800MG TOTAL DAILY
     Route: 048

REACTIONS (2)
  - UPPER LIMB FRACTURE [None]
  - INTENTIONAL DRUG MISUSE [None]
